FAERS Safety Report 16799288 (Version 2)
Quarter: 2021Q1

REPORT INFORMATION
  Report Type: Spontaneous
  Country: EG (occurrence: EG)
  Receive Date: 20190912
  Receipt Date: 20210307
  Transmission Date: 20210419
  Serious: Yes (Death, Hospitalization)
  Sender: FDA-Public Use
  Company Number: EG-JNJFOC-20190836826

PATIENT
  Age: 69 Year
  Sex: Female

DRUGS (1)
  1. DARZALEX [Suspect]
     Active Substance: DARATUMUMAB
     Indication: PRODUCT USED FOR UNKNOWN INDICATION
     Route: 042
     Dates: start: 201908

REACTIONS (5)
  - Hypotension [Fatal]
  - Septic shock [Fatal]
  - Pulmonary mycosis [Unknown]
  - Respiratory failure [Fatal]
  - Blood creatinine increased [Fatal]

NARRATIVE: CASE EVENT DATE: 201908
